FAERS Safety Report 12493708 (Version 4)
Quarter: 2016Q4

REPORT INFORMATION
  Report Type: Spontaneous
  Country: US (occurrence: US)
  Receive Date: 20160623
  Receipt Date: 20161017
  Transmission Date: 20170207
  Serious: Yes (Hospitalization)
  Sender: FDA-Public Use
  Company Number: US-JNJFOC-20160620266

PATIENT
  Age: 76 Year
  Sex: Male

DRUGS (29)
  1. HYDROCODONE/ACETAMINOPHEN [Concomitant]
     Active Substance: ACETAMINOPHEN\HYDROCODONE
     Dosage: 5 MG, QD, PRN
     Route: 048
  2. CLOPIDOGREL [Concomitant]
     Active Substance: CLOPIDOGREL BISULFATE
     Route: 048
  3. BENZONATATE. [Concomitant]
     Active Substance: BENZONATATE
     Route: 048
  4. LEVEMIR [Concomitant]
     Active Substance: INSULIN DETEMIR
     Dosage: 45 UNITS IN THE MORNING AND 34 UNITS IN THE PM.
     Route: 058
  5. PROAIR HFA [Concomitant]
     Active Substance: ALBUTEROL SULFATE
     Dosage: 2 PUFFS, 4 TIMES A DAY PRN.
  6. ENDUR-ACIN [Concomitant]
     Route: 048
  7. SPIRONOLACTONE. [Concomitant]
     Active Substance: SPIRONOLACTONE
     Route: 048
  8. FLEXERIL [Concomitant]
     Active Substance: CYCLOBENZAPRINE HYDROCHLORIDE
     Dosage: AS NEEDED.
     Route: 048
  9. NOVOLOG [Concomitant]
     Active Substance: INSULIN ASPART
     Dosage: AS DIRECTED.
  10. NOVOLOG [Concomitant]
     Active Substance: INSULIN ASPART
     Dosage: 16 UNITS IN THE AM AND 31 UNITS AT LUNCH AND 18 UNITS AT BED TIME.
  11. NIACIN. [Concomitant]
     Active Substance: NIACIN
     Route: 048
  12. PLAVIX [Concomitant]
     Active Substance: CLOPIDOGREL BISULFATE
     Route: 048
  13. CRESTOR [Concomitant]
     Active Substance: ROSUVASTATIN CALCIUM
     Route: 048
  14. ALLOPURINOL. [Concomitant]
     Active Substance: ALLOPURINOL
     Route: 048
  15. KCL [Concomitant]
     Active Substance: POTASSIUM CHLORIDE
     Dosage: 20 UNK
     Route: 048
  16. IMBRUVICA [Suspect]
     Active Substance: IBRUTINIB
     Indication: MANTLE CELL LYMPHOMA
     Route: 048
     Dates: start: 201506, end: 20160614
  17. IMBRUVICA [Suspect]
     Active Substance: IBRUTINIB
     Indication: MANTLE CELL LYMPHOMA
     Route: 048
     Dates: start: 201402
  18. HUMALOG [Concomitant]
     Active Substance: INSULIN LISPRO
     Dosage: UNK, BEFORE MEALS 3 TIMES A DAY.
  19. FISH OIL [Concomitant]
     Active Substance: FISH OIL
     Route: 048
  20. ONDANSETRON [Concomitant]
     Active Substance: ONDANSETRON
     Dosage: 8 MG, PRN EVERY 4 HRS.
     Route: 048
  21. VITAMIN D3 [Concomitant]
     Active Substance: CHOLECALCIFEROL
     Route: 048
  22. MIRALAX [Concomitant]
     Active Substance: POLYETHYLENE GLYCOL 3350
     Dosage: 17 GM/24 HR, QD PRN.
     Route: 048
  23. FUROSEMIDE. [Concomitant]
     Active Substance: FUROSEMIDE
     Route: 048
  24. ASPIRIN. [Concomitant]
     Active Substance: ASPIRIN
     Route: 048
  25. MECLIZINE [Concomitant]
     Active Substance: MECLIZINE HYDROCHLORIDE
     Route: 048
  26. CALCITRIOL. [Concomitant]
     Active Substance: CALCITRIOL
     Route: 048
  27. FISH OIL [Concomitant]
     Active Substance: FISH OIL
     Route: 048
  28. ALDACTONE [Concomitant]
     Active Substance: SPIRONOLACTONE
     Route: 048
  29. VITAMIN D3 [Concomitant]
     Active Substance: CHOLECALCIFEROL
     Route: 048

REACTIONS (7)
  - Staphylococcal infection [Recovering/Resolving]
  - Cough [Recovering/Resolving]
  - Skin mass [Unknown]
  - Abscess limb [Recovering/Resolving]
  - Umbilical hernia [Unknown]
  - Blood glucose increased [Unknown]
  - Abdominal wall abscess [Recovering/Resolving]

NARRATIVE: CASE EVENT DATE: 201606
